APPROVED DRUG PRODUCT: METHYLIN ER
Active Ingredient: METHYLPHENIDATE HYDROCHLORIDE
Strength: 20MG
Dosage Form/Route: TABLET, EXTENDED RELEASE;ORAL
Application: A075629 | Product #002 | TE Code: AB
Applicant: SPECGX LLC
Approved: May 9, 2000 | RLD: No | RS: No | Type: RX